FAERS Safety Report 5342101-X (Version None)
Quarter: 2007Q2

REPORT INFORMATION
  Report Type: 
  Country: None (occurrence: None)
  Receive Date: 20070416
  Receipt Date: 20070304
  Transmission Date: 20071010
  Serious: No
  Sender: FDA-Public Use
  Company Number: 2007SP000763

PATIENT
  Age: 50 Year
  Sex: Female
  Weight: 81.6475 kg

DRUGS (9)
  1. LUNESTA [Suspect]
     Indication: INSOMNIA
     Dosage: SEE IMAGE
     Route: 048
     Dates: start: 20060101, end: 20060101
  2. LUNESTA [Suspect]
     Indication: INSOMNIA
     Dosage: SEE IMAGE
     Route: 048
     Dates: start: 20070302
  3. AMBIEN [Concomitant]
  4. QUETIAPINE [Concomitant]
  5. CARBAMAZEPINE [Concomitant]
  6. CLONAZEPAM [Concomitant]
  7. TOPAMAX [Concomitant]
  8. CITALOPRAM HYDROBROMIDE [Concomitant]
  9. LITHIUM CARBONATE [Concomitant]

REACTIONS (1)
  - INITIAL INSOMNIA [None]
